FAERS Safety Report 8852448 (Version 2)
Quarter: 2012Q4

REPORT INFORMATION
  Report Type: Report from Study
  Country: ES (occurrence: ES)
  Receive Date: 20121022
  Receipt Date: 20121126
  Transmission Date: 20130627
  Serious: Yes (Hospitalization)
  Sender: FDA-Public Use
  Company Number: ES-ROCHE-1146265

PATIENT
  Age: 48 Year
  Sex: Female

DRUGS (7)
  1. PERTUZUMAB [Suspect]
     Indication: BREAST CANCER
     Dosage: Date of last dose prior to SAE:08/Oct/2012
     Route: 065
     Dates: start: 20120824
  2. TRASTUZUMAB [Suspect]
     Indication: BREAST CANCER
     Dosage: Last dose prior to SAE: 08 Oct 2012, dose received 390 mg
     Route: 065
     Dates: start: 20120824
  3. TRASTUZUMAB [Suspect]
     Dosage: Date of last dose prior to SAE:08/Oct/2012
     Route: 065
  4. DOCETAXEL [Suspect]
     Indication: BREAST CANCER
     Dosage: Date of last dose prior to SAE:08/Oct/2012
     Route: 065
     Dates: start: 20120824
  5. AUGMENTINE [Concomitant]
     Route: 065
     Dates: start: 20120901, end: 20120910
  6. ATARAX [Concomitant]
     Route: 065
     Dates: start: 20120820
  7. NAPROXENO [Concomitant]
     Route: 065
     Dates: start: 20120825, end: 20121008

REACTIONS (1)
  - Cellulitis [Recovered/Resolved]
